FAERS Safety Report 8319701-8 (Version None)
Quarter: 2012Q2

REPORT INFORMATION
  Report Type: 
  Country: None (occurrence: None)
  Receive Date: 20120427
  Receipt Date: 20120418
  Transmission Date: 20120825
  Serious: Yes (Other)
  Sender: FDA-Public Use
  Company Number: US-ASTRAZENECA-2012SE25306

PATIENT
  Age: 55 Year
  Sex: Female

DRUGS (2)
  1. OMEPRAZOLE [Suspect]
     Route: 048
  2. NEXIUM [Suspect]
     Route: 048

REACTIONS (7)
  - THROAT CANCER [None]
  - BARRETT'S OESOPHAGUS [None]
  - INTENTIONAL DRUG MISUSE [None]
  - VOMITING [None]
  - VERTIGO [None]
  - NAUSEA [None]
  - DRUG INEFFECTIVE [None]
